FAERS Safety Report 15780490 (Version 1)
Quarter: 2019Q1

REPORT INFORMATION
  Report Type: Spontaneous
  Country: US (occurrence: US)
  Receive Date: 20190102
  Receipt Date: 20190102
  Transmission Date: 20190417
  Serious: Yes (Other)
  Sender: FDA-Public Use
  Company Number: US-HORIZON-DUE-0753-2018

PATIENT
  Age: 55 Year
  Sex: Male

DRUGS (5)
  1. HYDROCODONE [Concomitant]
     Active Substance: HYDROCODONE
  2. ADDERALL [Concomitant]
     Active Substance: AMPHETAMINE ASPARTATE\AMPHETAMINE SULFATE\DEXTROAMPHETAMINE SACCHARATE\DEXTROAMPHETAMINE SULFATE
  3. MAGNESIUM [Concomitant]
     Active Substance: MAGNESIUM
  4. FISH OIL [Concomitant]
     Active Substance: FISH OIL
  5. DUEXIS [Suspect]
     Active Substance: FAMOTIDINE\IBUPROFEN
     Indication: KNEE ARTHROPLASTY
     Dosage: 2 TABLETS 2-4 TIMES A DAY
     Dates: start: 20181031

REACTIONS (2)
  - Off label use [Unknown]
  - Knee arthroplasty [Unknown]

NARRATIVE: CASE EVENT DATE: 20181031
